FAERS Safety Report 5566463-3 (Version None)
Quarter: 2007Q4

REPORT INFORMATION
  Report Type: 
  Country: None (occurrence: None)
  Receive Date: 20071219
  Receipt Date: 20070606
  Transmission Date: 20080405
  Serious: No
  Sender: FDA-Public Use
  Company Number: US-ABBOTT-07P-163-0371187-00

PATIENT
  Sex: Female
  Weight: 96 kg

DRUGS (7)
  1. VICODIN [Suspect]
     Indication: PAIN
     Dosage: 7.5/750MG BID
     Route: 048
     Dates: start: 20070605
  2. VICODIN [Suspect]
     Dosage: 7.5/750MG AS NEEDED
     Route: 048
     Dates: start: 20070605
  3. LITHIUM CARBONATE [Concomitant]
     Indication: DRUG USE FOR UNKNOWN INDICATION
     Route: 048
  4. BUPROPION HCL [Concomitant]
     Indication: DRUG USE FOR UNKNOWN INDICATION
     Route: 048
  5. LEVETIRACETAM [Concomitant]
     Indication: DRUG USE FOR UNKNOWN INDICATION
     Route: 048
  6. VITAMIN B [Concomitant]
     Indication: DRUG USE FOR UNKNOWN INDICATION
  7. MAGNESIUM BIOMED [Concomitant]
     Indication: DRUG USE FOR UNKNOWN INDICATION

REACTIONS (1)
  - ANXIETY [None]
